FAERS Safety Report 12221726 (Version 2)
Quarter: 2016Q2

REPORT INFORMATION
  Report Type: Spontaneous
  Country: US (occurrence: US)
  Receive Date: 20160330
  Receipt Date: 20160414
  Transmission Date: 20160815
  Serious: No
  Sender: FDA-Public Use
  Company Number: US-BAYER-2016-060942

PATIENT
  Age: 66 Year
  Sex: Female
  Weight: 72 kg

DRUGS (3)
  1. VITAMIN D [COLECALCIFEROL] [Concomitant]
  2. MIRALAX [Suspect]
     Active Substance: POLYETHYLENE GLYCOL 3350
     Indication: CONSTIPATION
     Dosage: FOR ABOUT 10 YEARS, SOMETIMES TAKES 1 DOSE DAILY/2 DOSE DAILY, DOCTOR RECOMMENTED DAILY USAGE
     Route: 048
     Dates: end: 201603
  3. OMEGA 3 [Concomitant]
     Active Substance: OMEGA-3 FATTY ACIDS

REACTIONS (5)
  - Vomiting [Recovered/Resolved]
  - Abdominal pain [Not Recovered/Not Resolved]
  - Product use issue [None]
  - Product physical issue [None]
  - Nausea [Recovered/Resolved]

NARRATIVE: CASE EVENT DATE: 201602
